FAERS Safety Report 8550503-3 (Version None)
Quarter: 2012Q3

REPORT INFORMATION
  Report Type: 
  Country: None (occurrence: None)
  Receive Date: 20120730
  Receipt Date: 20120719
  Transmission Date: 20120928
  Serious: Yes (Life-Threatening, Hospitalization)
  Sender: FDA-Public Use
  Company Number: BE-BRISTOL-MYERS SQUIBB COMPANY-16577868

PATIENT
  Age: 69 Year
  Sex: Male
  Weight: 71 kg

DRUGS (2)
  1. IRINOTECAN HCL [Suspect]
     Indication: COLORECTAL CANCER METASTATIC
     Dosage: NO OF INF 2
     Route: 042
     Dates: start: 20120320, end: 20120403
  2. CETUXIMAB [Suspect]
     Indication: COLORECTAL CANCER METASTATIC
     Dosage: LAST INF ON 10APR12 NO OF INF 4
     Route: 042
     Dates: start: 20120320, end: 20120410

REACTIONS (2)
  - PERFORMANCE STATUS DECREASED [None]
  - PULMONARY EMBOLISM [None]
